FAERS Safety Report 12926164 (Version 1)
Quarter: 2016Q4

REPORT INFORMATION
  Report Type: Spontaneous
  Country: CA (occurrence: CA)
  Receive Date: 20161109
  Receipt Date: 20161109
  Transmission Date: 20170207
  Serious: Yes (Disabling)
  Sender: FDA-Public Use
  Company Number: PHHY2016CA151020

PATIENT
  Age: 71 Year
  Sex: Male
  Weight: 76.19 kg

DRUGS (1)
  1. IRBESARTAN SANDOZ [Suspect]
     Active Substance: IRBESARTAN
     Indication: HYPERTENSION
     Route: 065

REACTIONS (5)
  - Anger [Recovered/Resolved]
  - Anxiety [Recovered/Resolved]
  - Depression [Recovered/Resolved]
  - Feeling jittery [Recovered/Resolved]
  - Frustration tolerance decreased [Recovered/Resolved]
